FAERS Safety Report 9079728 (Version 1)
Quarter: 2013Q1

REPORT INFORMATION
  Report Type: Spontaneous
  Country: US (occurrence: US)
  Receive Date: 20130215
  Receipt Date: 20130215
  Transmission Date: 20140127
  Serious: Yes (Other)
  Sender: FDA-Public Use
  Company Number: US-GLAXOSMITHKLINE-A1011680A

PATIENT
  Age: 61 Year
  Sex: Male

DRUGS (7)
  1. ADVAIR [Suspect]
     Indication: CHRONIC OBSTRUCTIVE PULMONARY DISEASE
     Dosage: 1PUFF TWICE PER DAY
     Route: 055
     Dates: start: 2004
  2. COMBIVENT [Concomitant]
  3. ALBUTEROL + IPRATROPIUM BROMIDE [Concomitant]
  4. METHOTREXATE [Concomitant]
  5. OTC ANTIHISTAMINE [Concomitant]
  6. PREDNISONE [Concomitant]
  7. MUCINEX [Concomitant]

REACTIONS (3)
  - Cataract operation [Not Recovered/Not Resolved]
  - Cataract [Unknown]
  - Corrective lens user [Unknown]
